FAERS Safety Report 4962833-2 (Version None)
Quarter: 2006Q1

REPORT INFORMATION
  Report Type: 
  Country: None (occurrence: None)
  Receive Date: 20060331
  Receipt Date: 20060320
  Transmission Date: 20060701
  Serious: Yes (Hospitalization)
  Sender: FDA-Public Use
  Company Number: HQWYE465422MAR06

PATIENT
  Age: 69 Year
  Sex: Female

DRUGS (8)
  1. MYLOTARG [Suspect]
     Indication: ACUTE MYELOID LEUKAEMIA
     Dosage: 9 MG/M^2 1X PER 1 DAY, INTRAVENOUS DRIP
     Route: 041
     Dates: start: 20051220, end: 20051220
  2. MEROPEN (MEROPENEM) [Concomitant]
  3. GRAVIT (LEVOFLOXACIN) [Concomitant]
  4. DIFLUCAN [Concomitant]
  5. FAMOTIDINE (FAMITIDINE) [Concomitant]
  6. PREDNISOLONE [Concomitant]
  7. MAGNESIUM OXIDE (MAGNESIUM OXIDE) [Concomitant]
  8. BROTIZOLAM (BROTIZOLAM) [Concomitant]

REACTIONS (7)
  - ANAEMIA [None]
  - BLOOD ALKALINE PHOSPHATASE INCREASED [None]
  - BLOOD LACTATE DEHYDROGENASE INCREASED [None]
  - DISEASE PROGRESSION [None]
  - FEBRILE NEUTROPENIA [None]
  - HERPES ZOSTER [None]
  - HYPOKALAEMIA [None]
